FAERS Safety Report 9880381 (Version 1)
Quarter: 2014Q1

REPORT INFORMATION
  Report Type: Spontaneous
  Country: US (occurrence: None)
  Receive Date: 20140206
  Receipt Date: 20140206
  Transmission Date: 20141002
  Serious: Yes (Other)
  Sender: FDA-Public Use
  Company Number: None

PATIENT
  Age: 62 Year
  Sex: Female
  Weight: 51.71 kg

DRUGS (13)
  1. IPRATROPIUM [Suspect]
     Indication: SINUSITIS
     Dates: start: 20140107, end: 20140108
  2. EYE DROPS [Concomitant]
  3. GENERIC COSOPT [Concomitant]
  4. TRAVASTATIN [Concomitant]
  5. AMITRIPTYLINE [Concomitant]
  6. IBUPROFEN [Concomitant]
  7. LUTEIN [Concomitant]
  8. B COMPLEX [Concomitant]
  9. CALCIUM [Concomitant]
  10. GLUCOSAMINE [Concomitant]
  11. CHONDROITIN [Concomitant]
  12. IRON [Concomitant]
  13. POTASSIUM [Concomitant]

REACTIONS (1)
  - Dysphonia [None]
